FAERS Safety Report 10190568 (Version 1)
Quarter: 2014Q2

REPORT INFORMATION
  Report Type: Report from Study
  Country: US (occurrence: US)
  Receive Date: 20140523
  Receipt Date: 20140523
  Transmission Date: 20141212
  Serious: Yes (Hospitalization)
  Sender: FDA-Public Use
  Company Number: GXBR2014US001305

PATIENT
  Age: 3 Year
  Sex: Male

DRUGS (6)
  1. OMNITROPE [Suspect]
     Indication: SILVER-RUSSELL SYNDROME
     Dosage: 0.4 MG, QD
     Route: 065
  2. MIRALAX [Concomitant]
     Dosage: UNK DF, UNK
  3. POTASSIUM CHLORIDE W/SODIUM CHLORIDE [Concomitant]
     Dosage: UNK DF, UNK
  4. CREON [Concomitant]
     Dosage: UNK DF, UNK
  5. FLAGYL ^SEARLE^ [Concomitant]
     Dosage: UNK DF, UNK
  6. VITAMIN D [Concomitant]
     Dosage: UNK DF, UNK
     Route: 048

REACTIONS (1)
  - Hypercalcaemia [Not Recovered/Not Resolved]
